FAERS Safety Report 9771456 (Version 2)
Quarter: 2014Q1

REPORT INFORMATION
  Report Type: Spontaneous
  Country: US (occurrence: US)
  Receive Date: 20131219
  Receipt Date: 20140114
  Transmission Date: 20141002
  Serious: Yes (Other)
  Sender: FDA-Public Use
  Company Number: US-JNJFOC-20131208814

PATIENT
  Age: 55 Year
  Sex: Female
  Weight: 89.81 kg

DRUGS (8)
  1. ZYRTEC IR 10MG TABLET [Suspect]
     Route: 048
  2. ZYRTEC IR 10MG TABLET [Suspect]
     Indication: HYPERSENSITIVITY
     Dosage: 1 PILL AT BED TIME
     Route: 048
     Dates: start: 20011212
  3. SINGULAIR [Concomitant]
     Indication: HYPERSENSITIVITY
     Route: 065
  4. COUMADIN [Concomitant]
     Indication: FACTOR V LEIDEN MUTATION
     Route: 065
  5. DALMANE [Concomitant]
     Indication: SLEEP DISORDER
     Route: 065
  6. FLEXERIL [Concomitant]
     Indication: MUSCLE RELAXANT THERAPY
     Route: 065
  7. ASTHMA INHALER, UNSPECIFIED [Concomitant]
     Indication: ASTHMA
     Route: 065
  8. SYNTHROID [Concomitant]
     Indication: HYPOTHYROIDISM
     Route: 065

REACTIONS (2)
  - Urinary tract infection [Not Recovered/Not Resolved]
  - Product packaging issue [Unknown]
